FAERS Safety Report 25289287 (Version 1)
Quarter: 2025Q2

REPORT INFORMATION
  Report Type: Spontaneous
  Country: RU (occurrence: RU)
  Receive Date: 20250509
  Receipt Date: 20250509
  Transmission Date: 20250717
  Serious: Yes (Other)
  Sender: SANOFI AVENTIS
  Company Number: RU-SA-2025SA131960

PATIENT
  Sex: Female

DRUGS (1)
  1. ARAVA [Suspect]
     Active Substance: LEFLUNOMIDE
     Dates: start: 2021

REACTIONS (5)
  - Lung neoplasm malignant [Unknown]
  - Obstructive airways disorder [Unknown]
  - Tracheitis [Unknown]
  - COVID-19 [Unknown]
  - Bronchitis [Unknown]

NARRATIVE: CASE EVENT DATE: 20220101
